FAERS Safety Report 6886990 (Version 9)
Quarter: 2014Q3

REPORT INFORMATION
  Report Type: Report from Study
  Country: US (occurrence: US)
  Receive Date: 20050622
  Receipt Date: 20140801
  Transmission Date: 20150326
  Serious: Yes (Hospitalization, Other)
  Sender: FDA-Public Use
  Company Number: US-BIOGENIDEC-2005BI010964

PATIENT
  Age: 56 Year
  Sex: Female
  Weight: 92 kg

DRUGS (11)
  1. LIPITOR [Concomitant]
     Active Substance: ATORVASTATIN CALCIUM
     Indication: BLOOD CHOLESTEROL INCREASED
     Dates: start: 2004
  2. GLUCOSAMINE VITAMIN [Concomitant]
     Indication: ROUTINE HEALTH MAINTENANCE
  3. AVONEX [Suspect]
     Active Substance: INTERFERON BETA-1A
     Indication: MULTIPLE SCLEROSIS
     Route: 030
     Dates: start: 20121009
  4. PROZAC [Concomitant]
     Active Substance: FLUOXETINE HYDROCHLORIDE
     Indication: DEPRESSION
     Dates: start: 2001
  5. SYNTHROID [Concomitant]
     Active Substance: LEVOTHYROXINE SODIUM
     Indication: HYPOTHYROIDISM
  6. ASPIRIN. [Concomitant]
     Active Substance: ASPIRIN
     Indication: ANTICOAGULANT THERAPY
     Dates: start: 2004
  7. REQUIP [Concomitant]
     Active Substance: ROPINIROLE HYDROCHLORIDE
     Indication: TREMOR
     Dates: start: 200501
  8. AVONEX [Suspect]
     Active Substance: INTERFERON BETA-1A
     Indication: MULTIPLE SCLEROSIS
     Route: 030
  9. AVONEX [Suspect]
     Active Substance: INTERFERON BETA-1A
     Indication: MULTIPLE SCLEROSIS
     Route: 030
     Dates: start: 20050201, end: 200505
  10. PRIM ROSE OIL [Concomitant]
     Indication: HOT FLUSH
     Dates: start: 2003
  11. NEURONTIN [Concomitant]
     Active Substance: GABAPENTIN
     Indication: TREMOR
     Dates: start: 200501

REACTIONS (24)
  - Contusion [Recovered/Resolved]
  - Myocardial infarction [Recovered/Resolved]
  - Hypertension [Not Recovered/Not Resolved]
  - Visual impairment [Not Recovered/Not Resolved]
  - Sleep disorder [Not Recovered/Not Resolved]
  - Convulsion [Recovered/Resolved]
  - Fall [Recovered/Resolved]
  - Coordination abnormal [Not Recovered/Not Resolved]
  - Multiple sclerosis [Not Recovered/Not Resolved]
  - Anxiety [Recovered/Resolved with Sequelae]
  - Fatigue [Not Recovered/Not Resolved]
  - Coronary artery occlusion [Unknown]
  - Stress [Not Recovered/Not Resolved]
  - Somnolence [Recovered/Resolved]
  - Cardiac disorder [Unknown]
  - Muscular weakness [Not Recovered/Not Resolved]
  - Muscle spasms [Not Recovered/Not Resolved]
  - Memory impairment [Unknown]
  - Balance disorder [Not Recovered/Not Resolved]
  - Tremor [Not Recovered/Not Resolved]
  - Dyspnoea [Recovered/Resolved]
  - Increased tendency to bruise [Unknown]
  - Hernia [Not Recovered/Not Resolved]
  - Pain [Recovered/Resolved]

NARRATIVE: CASE EVENT DATE: 2005
